FAERS Safety Report 9649324 (Version 1)
Quarter: 2013Q4

REPORT INFORMATION
  Report Type: Report from Study
  Country: BR (occurrence: BR)
  Receive Date: 20131028
  Receipt Date: 20131028
  Transmission Date: 20140711
  Serious: Yes (Disabling)
  Sender: FDA-Public Use
  Company Number: BR-SA-2013SA105972

PATIENT
  Sex: Male

DRUGS (1)
  1. MYOZYME [Suspect]
     Indication: GLYCOGEN STORAGE DISEASE TYPE II
     Dosage: START DATE : APPROXIMATELY 4 YEARS AGO
     Route: 042

REACTIONS (2)
  - Weight increased [Unknown]
  - Impaired work ability [Unknown]
